FAERS Safety Report 5304280-X (Version None)
Quarter: 2007Q2

REPORT INFORMATION
  Report Type: 
  Country: None (occurrence: None)
  Receive Date: 20070413
  Receipt Date: 20070402
  Transmission Date: 20071010
  Serious: Yes (Other)
  Sender: FDA-Public Use
  Company Number: 2006BI017389

PATIENT
  Age: 56 Year
  Sex: Male
  Weight: 74.8435 kg

DRUGS (5)
  1. AVONEX [Suspect]
     Indication: MULTIPLE SCLEROSIS
     Dosage: IM
     Route: 030
     Dates: start: 19990101
  2. AVONEX [Suspect]
     Indication: MULTIPLE SCLEROSIS
     Dosage: 30 UG QW IM
     Route: 030
     Dates: end: 20060901
  3. CELEXA [Concomitant]
  4. BACLOFEN [Concomitant]
  5. FLOMAX [Concomitant]

REACTIONS (10)
  - BENIGN BONE NEOPLASM [None]
  - COLON CANCER [None]
  - DYSURIA [None]
  - HEPATIC CYST [None]
  - LIPOMA [None]
  - LUNG NEOPLASM [None]
  - LYMPHADENOPATHY [None]
  - NOCTURIA [None]
  - RECTAL CANCER [None]
  - SPINAL OSTEOARTHRITIS [None]
